FAERS Safety Report 16846586 (Version 4)
Quarter: 2021Q2

REPORT INFORMATION
  Report Type: Spontaneous
  Country: US (occurrence: US)
  Receive Date: 20190924
  Receipt Date: 20210407
  Transmission Date: 20210716
  Serious: Yes (Other)
  Sender: FDA-Public Use
  Company Number: US-GILEAD-2019-0428523

PATIENT
  Age: 58 Year
  Sex: Male

DRUGS (1)
  1. STRIBILD [Suspect]
     Active Substance: COBICISTAT\ELVITEGRAVIR\EMTRICITABINE\TENOFOVIR DISOPROXIL FUMARATE
     Indication: ACQUIRED IMMUNODEFICIENCY SYNDROME
     Dosage: UNK
     Route: 048
     Dates: start: 20141225, end: 20150116

REACTIONS (18)
  - Tooth loss [Not Recovered/Not Resolved]
  - Vitamin D deficiency [Not Recovered/Not Resolved]
  - Anhedonia [Not Recovered/Not Resolved]
  - Bone density decreased [Unknown]
  - Osteonecrosis [Unknown]
  - Pain [Not Recovered/Not Resolved]
  - Chronic kidney disease [Not Recovered/Not Resolved]
  - Fracture [Unknown]
  - Anxiety [Not Recovered/Not Resolved]
  - Renal failure [Unknown]
  - Economic problem [Not Recovered/Not Resolved]
  - Nephrolithiasis [Unknown]
  - Nephropathy [Unknown]
  - Emotional distress [Not Recovered/Not Resolved]
  - End stage renal disease [Not Recovered/Not Resolved]
  - Renal disorder [Unknown]
  - Bone loss [Unknown]
  - Bone disorder [Unknown]

NARRATIVE: CASE EVENT DATE: 20150116
